FAERS Safety Report 4576819-3 (Version None)
Quarter: 2005Q1

REPORT INFORMATION
  Report Type: 
  Country: None (occurrence: None)
  Receive Date: 20050207
  Receipt Date: 20050124
  Transmission Date: 20050727
  Serious: Yes (Hospitalization, Other)
  Sender: FDA-Public Use
  Company Number: 2005021164

PATIENT
  Sex: Male
  Weight: 4.0824 kg

DRUGS (1)
  1. ZOLOFT [Suspect]

REACTIONS (8)
  - BLOOD BILIRUBIN INCREASED [None]
  - CAESAREAN SECTION [None]
  - COOMBS DIRECT TEST POSITIVE [None]
  - DRUG EXPOSURE DURING PREGNANCY [None]
  - DRUG EXPOSURE VIA BREAST MILK [None]
  - FLATULENCE [None]
  - LARGE FOR DATES BABY [None]
  - TRANSFUSION REACTION [None]
